FAERS Safety Report 11380018 (Version 2)
Quarter: 2015Q3

REPORT INFORMATION
  Report Type: Spontaneous
  Country: JP (occurrence: JP)
  Receive Date: 20150814
  Receipt Date: 20150828
  Transmission Date: 20151125
  Serious: Yes (Death, Other)
  Sender: FDA-Public Use
  Company Number: JP-009507513-1508JPN004433

PATIENT
  Age: 67 Year
  Sex: Female
  Weight: 50 kg

DRUGS (6)
  1. CANCIDAS [Suspect]
     Active Substance: CASPOFUNGIN ACETATE
     Indication: OESOPHAGEAL CANDIDIASIS
     Dosage: 50 MG, QD
     Route: 041
     Dates: start: 20150225, end: 20150306
  2. MEROPENEM. [Concomitant]
     Active Substance: MEROPENEM
     Indication: SEPSIS
     Dosage: 2 G, BID
     Route: 051
     Dates: start: 20150224, end: 20150226
  3. CUBICIN [Concomitant]
     Active Substance: DAPTOMYCIN
     Indication: SEPSIS
     Dosage: UNK
     Route: 051
     Dates: start: 20150224, end: 20150224
  4. CEFAMEZIN ALFA [Concomitant]
     Indication: SEPSIS
     Dosage: UNK
     Route: 051
     Dates: start: 20150226, end: 20150306
  5. CANCIDAS [Suspect]
     Active Substance: CASPOFUNGIN ACETATE
     Indication: OESOPHAGEAL CANDIDIASIS
     Dosage: 70 MG, QD
     Route: 041
     Dates: start: 20150224, end: 20150224
  6. DENOSINE [Concomitant]
     Active Substance: GANCICLOVIR
     Indication: CYTOMEGALOVIRUS VIRAEMIA
     Dosage: UNK
     Dates: start: 20150302, end: 20150307

REACTIONS (1)
  - Sepsis [Fatal]

NARRATIVE: CASE EVENT DATE: 20150307
